FAERS Safety Report 7090133-6 (Version None)
Quarter: 2010Q4

REPORT INFORMATION
  Report Type: 
  Country: None (occurrence: None)
  Receive Date: 20101105
  Receipt Date: 20101105
  Transmission Date: 20110411
  Serious: Yes (Other)
  Sender: FDA-Public Use
  Company Number: None

PATIENT
  Age: 65 Year
  Sex: Male
  Weight: 72.5755 kg

DRUGS (2)
  1. AVODART [Suspect]
     Indication: MEMORY IMPAIRMENT
  2. ARICEPT [Suspect]
     Indication: MEMORY IMPAIRMENT

REACTIONS (1)
  - GASTROINTESTINAL DISORDER [None]
